FAERS Safety Report 6256854-X (Version None)
Quarter: 2009Q3

REPORT INFORMATION
  Report Type: 
  Country: None (occurrence: None)
  Receive Date: 20090706
  Receipt Date: 20090629
  Transmission Date: 20100115
  Serious: Yes (Death, Other)
  Sender: FDA-Public Use
  Company Number: PHEH2009US06981

PATIENT
  Sex: Male

DRUGS (3)
  1. SANDIMMUNE [Suspect]
     Dosage: UNK
     Dates: start: 20070302, end: 20070509
  2. NEUPOGEN [Concomitant]
  3. ARANESP [Concomitant]

REACTIONS (3)
  - CONCOMITANT DISEASE PROGRESSION [None]
  - MYELODYSPLASTIC SYNDROME [None]
  - RENAL FAILURE [None]
